FAERS Safety Report 15580445 (Version 1)
Quarter: 2018Q4

REPORT INFORMATION
  Report Type: Spontaneous
  Country: KZ (occurrence: KZ)
  Receive Date: 20181102
  Receipt Date: 20181102
  Transmission Date: 20190205
  Serious: Yes (Death, Other)
  Sender: FDA-Public Use
  Company Number: KZ-009507513-1810KAZ013263

PATIENT
  Age: 62 Year
  Sex: Male
  Weight: 61.81 kg

DRUGS (10)
  1. DELAMANID [Suspect]
     Active Substance: DELAMANID
     Indication: PULMONARY TUBERCULOSIS
     Dosage: 200 MILLIGRAM, QD
     Route: 048
     Dates: start: 20180709, end: 20180713
  2. LINEZOLID. [Suspect]
     Active Substance: LINEZOLID
     Indication: PULMONARY TUBERCULOSIS
     Dosage: 600 MILLIGRAM, QD
     Route: 048
     Dates: start: 20180402, end: 2018
  3. BEDAQUILINE [Suspect]
     Active Substance: BEDAQUILINE
     Dosage: 400 MILLIGRAM (ALSO REPORTED 200 MILLIGRAM), QD
     Route: 048
     Dates: start: 20180709, end: 20180713
  4. LINEZOLID. [Suspect]
     Active Substance: LINEZOLID
     Dosage: 600 MILLIGRAM, QD
     Route: 048
     Dates: start: 20180709, end: 20180713
  5. IMIPENEM AND CILASTATIN [Suspect]
     Active Substance: CILASTATIN SODIUM\IMIPENEM
     Indication: PULMONARY TUBERCULOSIS
     Dosage: 2000 MILLIGRAM, QD
     Route: 042
     Dates: start: 20180402, end: 20180625
  6. CLOFAZIMINE [Suspect]
     Active Substance: CLOFAZIMINE
     Indication: PULMONARY TUBERCULOSIS
     Dosage: 200 MILLIGRAM (ALSO REPORTED100 MILLIGRAM), QD
     Route: 048
     Dates: start: 20180402, end: 2018
  7. CLOFAZIMINE [Suspect]
     Active Substance: CLOFAZIMINE
     Dosage: 200 MILLIGRAM (ALSO REPORTED100 MILLIGRAM), QD
     Route: 048
     Dates: start: 20180709, end: 20180713
  8. AMOXICILLIN (+) CLAVULANATE POTASSIUM [Suspect]
     Active Substance: AMOXICILLIN\CLAVULANATE POTASSIUM
     Indication: PULMONARY TUBERCULOSIS
     Dosage: 1250 MILLIGRAM, QD
     Route: 048
     Dates: start: 20180402, end: 20180625
  9. DELAMANID [Suspect]
     Active Substance: DELAMANID
     Dosage: 200 MILLIGRAM, QD
     Route: 048
     Dates: start: 20180402, end: 2018
  10. BEDAQUILINE [Suspect]
     Active Substance: BEDAQUILINE
     Indication: PULMONARY TUBERCULOSIS
     Dosage: 400 MILLIGRAM (ALSO REPORTED 200 MILLIGRAM), QD
     Route: 048
     Dates: start: 20180402, end: 2018

REACTIONS (3)
  - Treatment failure [Fatal]
  - Pulmonary embolism [Fatal]
  - Treatment noncompliance [Unknown]

NARRATIVE: CASE EVENT DATE: 2018
